FAERS Safety Report 16614435 (Version 4)
Quarter: 2019Q3

REPORT INFORMATION
  Report Type: Report from Study
  Country: BR (occurrence: BR)
  Receive Date: 20190723
  Receipt Date: 20190925
  Transmission Date: 20191004
  Serious: Yes (Hospitalization)
  Sender: FDA-Public Use
  Company Number: BR-BIOGEN-2018BI00595232

PATIENT
  Sex: Male

DRUGS (4)
  1. AVONEX [Suspect]
     Active Substance: INTERFERON BETA-1A
     Indication: MULTIPLE SCLEROSIS
     Route: 050
     Dates: start: 20100318
  2. AVONEX [Suspect]
     Active Substance: INTERFERON BETA-1A
     Route: 050
     Dates: start: 2011, end: 201505
  3. AVONEX [Suspect]
     Active Substance: INTERFERON BETA-1A
     Route: 050
     Dates: start: 2010, end: 2012
  4. VITAMIN D [Concomitant]
     Active Substance: VITAMIN D NOS
     Indication: PRODUCT USED FOR UNKNOWN INDICATION
     Route: 065

REACTIONS (14)
  - Fall [Recovered/Resolved]
  - Multiple sclerosis relapse [Recovered/Resolved with Sequelae]
  - Gait disturbance [Recovered/Resolved]
  - Nerve injury [Not Recovered/Not Resolved]
  - Constipation [Not Recovered/Not Resolved]
  - Muscle atrophy [Unknown]
  - Drug ineffective [Recovered/Resolved]
  - Hypertonic bladder [Recovered/Resolved]
  - Micturition urgency [Unknown]
  - Urinary hesitation [Unknown]
  - Influenza [Recovered/Resolved]
  - Diarrhoea [Recovered/Resolved]
  - Hypotonia [Unknown]
  - Dysstasia [Not Recovered/Not Resolved]

NARRATIVE: CASE EVENT DATE: 2014
